FAERS Safety Report 6752324-0 (Version None)
Quarter: 2010Q2

REPORT INFORMATION
  Report Type: 
  Country: None (occurrence: None)
  Receive Date: 20100602
  Receipt Date: 20100525
  Transmission Date: 20101027
  Serious: Yes (Hospitalization)
  Sender: FDA-Public Use
  Company Number: GXKR2010CH05903

PATIENT
  Age: 87 Year
  Sex: Female

DRUGS (21)
  1. VANCOMYCIN (NGX) [Suspect]
     Indication: DERMATITIS
     Dosage: 200 MG, UNK
     Route: 042
     Dates: start: 20100324, end: 20100329
  2. GLIBENCLAMIDE (NGX) [Suspect]
     Indication: DIABETES MELLITUS
     Dosage: 2.5 MG, BID
     Route: 048
     Dates: start: 20100320, end: 20100321
  3. ENALAPRIL MALEATE [Suspect]
     Indication: ESSENTIAL HYPERTENSION
     Dosage: 5 MG, BID
     Route: 048
     Dates: start: 20100328, end: 20100328
  4. FUROSEMIDE (NGX) [Suspect]
     Indication: OEDEMA
     Dosage: 40 MG, UNK
     Route: 048
     Dates: start: 20100324, end: 20100325
  5. AUGMENTIN ES-600 [Suspect]
     Indication: DERMATITIS
     Dosage: UNK
     Route: 042
     Dates: start: 20100320, end: 20100325
  6. IMIPENEM AND CILASTATIN [Suspect]
     Indication: DERMATITIS
     Dosage: 500 MG, QID
     Route: 042
     Dates: start: 20100324, end: 20100404
  7. IRBESARTAN [Concomitant]
     Indication: ESSENTIAL HYPERTENSION
     Dosage: 150 MG, QD
     Route: 048
     Dates: start: 20100320, end: 20100325
  8. METFORMIN HCL [Concomitant]
     Indication: DIABETES MELLITUS
     Dosage: 500 MG, BID
     Route: 048
     Dates: start: 20100320, end: 20100330
  9. SPIRONOLACTONE [Concomitant]
     Dosage: 25 MG, QD
     Route: 048
     Dates: start: 20100320, end: 20100324
  10. PARACETAMOL [Concomitant]
     Indication: PYREXIA
     Dosage: 1 G, QD
     Route: 048
     Dates: start: 20100320, end: 20100328
  11. CLINDAMYCIN [Concomitant]
     Indication: DERMATITIS
     Dosage: 300 MG, QID
     Route: 042
     Dates: start: 20100323, end: 20100324
  12. TEICOPLANIN [Concomitant]
     Indication: DERMATITIS
     Dosage: 400 MG, QD
     Route: 041
     Dates: start: 20100323, end: 20100324
  13. METAMIZOLE SODIUM [Concomitant]
     Indication: PAIN
     Dosage: 500 MG, QD
     Route: 048
     Dates: start: 20100325, end: 20100325
  14. ACETAZOLAMIDE [Concomitant]
     Dosage: 250 MG, QD
     Route: 048
     Dates: start: 20100327, end: 20100328
  15. FONDAPARINUX SODIUM [Concomitant]
     Dosage: 2.5 MG, QD
     Route: 058
     Dates: start: 20100326, end: 20100330
  16. ENOXAPARIN SODIUM [Concomitant]
     Dosage: 40 MG, QD
     Route: 058
     Dates: start: 20100322, end: 20100325
  17. TORSEMIDE [Concomitant]
     Indication: OEDEMA
     Dosage: 5 MG, QD
     Route: 048
     Dates: start: 20100327
  18. GENTAMICIN [Concomitant]
     Indication: DERMATITIS
     Dosage: 30032010 UNK, UNK
     Route: 041
     Dates: start: 20100330, end: 20100330
  19. METOPROLOL TARTRATE [Concomitant]
     Indication: ESSENTIAL HYPERTENSION
     Dosage: 12.5 MG, QID
     Route: 048
     Dates: start: 20100330, end: 20100330
  20. ESOMEPRAZOLE MAGNESIUM [Concomitant]
     Dosage: 40 MG, QD
     Route: 048
     Dates: start: 20100331, end: 20100404
  21. AMLODIPINE [Concomitant]
     Indication: ESSENTIAL HYPERTENSION
     Dosage: 5 MG, QD
     Route: 048
     Dates: start: 20100328, end: 20100330

REACTIONS (4)
  - CHILLS [None]
  - CONFUSIONAL STATE [None]
  - DERMATITIS BULLOUS [None]
  - LINEAR IGA DISEASE [None]
